FAERS Safety Report 9432862 (Version 3)
Quarter: 2014Q4

REPORT INFORMATION
  Report Type: Spontaneous
  Country: ES (occurrence: ES)
  Receive Date: 20130731
  Receipt Date: 20141006
  Transmission Date: 20150529
  Serious: Yes (Hospitalization, Other)
  Sender: FDA-Public Use
  Company Number: ES-VERTEX PHARMACEUTICALS INC-2013-008370

PATIENT
  Age: 57 Year
  Sex: Male

DRUGS (4)
  1. RIBAVIRIN. [Suspect]
     Active Substance: RIBAVIRIN
     Indication: HEPATITIS C
     Dosage: 400 MG, BID
     Route: 048
     Dates: start: 20121002
  2. PEGASYS [Suspect]
     Active Substance: PEGINTERFERON ALFA-2A
     Indication: HEPATITIS C
     Dosage: 180 ?G, QW
     Route: 058
     Dates: start: 20121002
  3. INCIVO [Suspect]
     Active Substance: TELAPREVIR
     Indication: HEPATITIS C
     Dosage: 750 MG, TID
     Route: 048
     Dates: start: 20121002, end: 20121130
  4. INCIVO [Suspect]
     Active Substance: TELAPREVIR
     Dosage: 750 MG, TID
     Route: 048

REACTIONS (9)
  - Pruritus [Recovering/Resolving]
  - Anaemia [Unknown]
  - Pancreatitis acute [Recovered/Resolved]
  - Thrombocytopenia [Recovered/Resolved]
  - Haemorrhoids [Unknown]
  - Anal pruritus [Unknown]
  - Anxiety [Recovering/Resolving]
  - Neutropenia [Unknown]
  - Anorectal discomfort [Unknown]

NARRATIVE: CASE EVENT DATE: 20121123
